FAERS Safety Report 16240529 (Version 2)
Quarter: 2022Q2

REPORT INFORMATION
  Report Type: Report from Study
  Country: US (occurrence: US)
  Receive Date: 20190425
  Receipt Date: 20220422
  Transmission Date: 20220721
  Serious: No
  Sender: FDA-Public Use
  Company Number: PHEH2019US017497

PATIENT
  Sex: Male

DRUGS (2)
  1. ILARIS [Suspect]
     Active Substance: CANAKINUMAB
     Indication: Cryopyrin associated periodic syndrome
     Dosage: 150 MG, EVERY 6 WEEK
     Route: 058
     Dates: start: 20191011
  2. ILARIS [Suspect]
     Active Substance: CANAKINUMAB
     Indication: Cold urticaria

REACTIONS (1)
  - White blood cell count decreased [Unknown]
